FAERS Safety Report 4924890-9 (Version None)
Quarter: 2006Q1

REPORT INFORMATION
  Report Type: 
  Country: None (occurrence: None)
  Receive Date: 20060227
  Receipt Date: 20050112
  Transmission Date: 20060701
  Serious: Yes (Death, Hospitalization)
  Sender: FDA-Public Use
  Company Number: US-MERCK-0501USA01193

PATIENT
  Age: 62 Year
  Sex: Male
  Weight: 77 kg

DRUGS (1)
  1. VIOXX [Suspect]
     Indication: MYALGIA
     Route: 048
     Dates: start: 19990101, end: 20021101

REACTIONS (3)
  - CEREBROVASCULAR ACCIDENT [None]
  - DEATH [None]
  - HYPERTENSION [None]
